FAERS Safety Report 7287850-1 (Version None)
Quarter: 2011Q1

REPORT INFORMATION
  Report Type: 
  Country: None (occurrence: None)
  Receive Date: 20110211
  Receipt Date: 20110207
  Transmission Date: 20110831
  Serious: No
  Sender: FDA-Public Use
  Company Number: US-PFIZER INC-2011027157

PATIENT
  Age: 20 Year

DRUGS (2)
  1. DILANTIN [Suspect]
     Dosage: UNK
  2. SUTENT [Suspect]
     Dosage: UNK

REACTIONS (1)
  - DRUG LEVEL INCREASED [None]
